FAERS Safety Report 13965780 (Version 1)
Quarter: 2017Q3

REPORT INFORMATION
  Report Type: Spontaneous
  Country: GR (occurrence: GR)
  Receive Date: 20170913
  Receipt Date: 20170913
  Transmission Date: 20171128
  Serious: Yes (Life-Threatening, Hospitalization, Other)
  Sender: FDA-Public Use
  Company Number: GR-JNJFOC-20170910640

PATIENT
  Age: 48 Year
  Sex: Female

DRUGS (2)
  1. DOXORUBICIN HYDROCHLORIDE. [Suspect]
     Active Substance: DOXORUBICIN HYDROCHLORIDE
     Indication: CHONDROSARCOMA RECURRENT
     Route: 065
  2. IFOSFAMIDE. [Concomitant]
     Active Substance: IFOSFAMIDE
     Indication: CHONDROSARCOMA RECURRENT
     Route: 065

REACTIONS (6)
  - Cardiomyopathy [Recovered/Resolved]
  - Off label use [Unknown]
  - Hepatic failure [Recovered/Resolved]
  - Cardiac failure [Recovered/Resolved]
  - Drug ineffective for unapproved indication [Unknown]
  - Cardiogenic shock [Recovering/Resolving]
